FAERS Safety Report 21097309 (Version 1)
Quarter: 2022Q3

REPORT INFORMATION
  Report Type: Report from Study
  Country: US (occurrence: US)
  Receive Date: 20220719
  Receipt Date: 20220719
  Transmission Date: 20221027
  Serious: Yes (Other)
  Sender: FDA-Public Use
  Company Number: US-BIOVITRUM-2022US08426

PATIENT
  Sex: Male

DRUGS (11)
  1. KINERET [Suspect]
     Active Substance: ANAKINRA
     Indication: Multisystem inflammatory syndrome
  2. KINERET [Suspect]
     Active Substance: ANAKINRA
     Indication: Kawasaki^s disease
  3. CLONIDINE [Concomitant]
     Active Substance: CLONIDINE
     Indication: Product used for unknown indication
  4. ASPIRIN [Concomitant]
     Active Substance: ASPIRIN
     Indication: Product used for unknown indication
  5. VYVANSE [Concomitant]
     Active Substance: LISDEXAMFETAMINE DIMESYLATE
     Indication: Product used for unknown indication
  6. LOVENOX [Concomitant]
     Active Substance: ENOXAPARIN SODIUM
  7. VYVANSE [Concomitant]
     Active Substance: LISDEXAMFETAMINE DIMESYLATE
     Indication: Product used for unknown indication
  8. KEFLEX [Concomitant]
     Active Substance: CEPHALEXIN
  9. PREDNISONE [Concomitant]
     Active Substance: PREDNISONE
  10. CLONIDINE [Concomitant]
     Active Substance: CLONIDINE
     Indication: Product used for unknown indication
  11. ASPIRIN [Concomitant]
     Active Substance: ASPIRIN
     Indication: Product used for unknown indication

REACTIONS (9)
  - Cellulitis [Recovered/Resolved]
  - Erythema [Unknown]
  - Skin warm [Unknown]
  - Skin mass [Unknown]
  - Injection site erythema [Unknown]
  - Injection site pruritus [Unknown]
  - Injection site pain [Unknown]
  - Product dose omission issue [Unknown]
  - Off label use [Unknown]
